FAERS Safety Report 4312577-5 (Version None)
Quarter: 2004Q1

REPORT INFORMATION
  Report Type: 
  Country: None (occurrence: None)
  Receive Date: 20040303
  Receipt Date: 20040220
  Transmission Date: 20041129
  Serious: Yes (Other)
  Sender: FDA-Public Use
  Company Number: US-JNJFOC-20031006132

PATIENT
  Age: 65 Year
  Sex: Female
  Weight: 42.1845 kg

DRUGS (11)
  1. REMICADE [Suspect]
     Indication: RHEUMATOID ARTHRITIS
     Dosage: SEE IMAGE
     Route: 042
     Dates: start: 20000906
  2. PREDNISONE [Concomitant]
  3. METHOTREXATE [Concomitant]
  4. PREVACID [Concomitant]
  5. CALCIUM (CALCIUM) [Concomitant]
  6. VITAMIN D [Concomitant]
  7. FOSAMAX [Concomitant]
  8. VICODIN [Concomitant]
  9. MIACALCIN [Concomitant]
  10. FOLIC ACID [Concomitant]
  11. NEXIUM [Concomitant]

REACTIONS (6)
  - ATRIAL FIBRILLATION [None]
  - CARDIAC FAILURE CONGESTIVE [None]
  - NAUSEA [None]
  - PERICARDIAL EFFUSION [None]
  - PERICARDITIS [None]
  - VOMITING [None]
